FAERS Safety Report 8909433 (Version 1)
Quarter: 2012Q4

REPORT INFORMATION
  Report Type: 
  Country: US (occurrence: US)
  Receive Date: 20121115
  Receipt Date: 20121115
  Transmission Date: 20130627
  Serious: Yes (Hospitalization)
  Sender: FDA-Public Use
  Company Number: US-BAYER-2012-116561

PATIENT
  Age: 42 Year
  Sex: Female

DRUGS (9)
  1. YAZ [Suspect]
  2. YASMIN [Suspect]
  3. SYNTHROID [Concomitant]
     Dosage: 75 mcg
  4. TRAZODONE [Concomitant]
     Indication: SLEEP DISORDER NOS
  5. PROZAC [Concomitant]
     Dosage: 20 mg, UNK
  6. BUSPIRONE [Concomitant]
     Dosage: 5 mg, UNK
  7. HYDROCODONE W/APAP [Concomitant]
     Dosage: 5/500
  8. DARVOCET-N [Concomitant]
     Indication: PAIN
  9. FLEXERIL [Concomitant]
     Indication: LOW BACK PAIN

REACTIONS (3)
  - Pulmonary embolism [None]
  - Deep vein thrombosis [None]
  - Thrombophlebitis superficial [None]
